FAERS Safety Report 8020293-1 (Version None)
Quarter: 2012Q1

REPORT INFORMATION
  Report Type: 
  Country: None (occurrence: None)
  Receive Date: 20120103
  Receipt Date: 20111222
  Transmission Date: 20120608
  Serious: No
  Sender: FDA-Public Use
  Company Number: JP-CEPHALON-2012000015

PATIENT
  Sex: Female

DRUGS (1)
  1. BENDAMUSTINE HCL [Suspect]
     Route: 042
     Dates: start: 20111124, end: 20111125

REACTIONS (1)
  - BONE MARROW FAILURE [None]
